FAERS Safety Report 8238110-3 (Version None)
Quarter: 2012Q1

REPORT INFORMATION
  Report Type: 
  Country: None (occurrence: None)
  Receive Date: 20120327
  Receipt Date: 20120320
  Transmission Date: 20120608
  Serious: Yes (Hospitalization)
  Sender: FDA-Public Use
  Company Number: DE-GLAXOSMITHKLINE-B0791458A

PATIENT
  Sex: Female
  Weight: 51 kg

DRUGS (5)
  1. TRASTUZUMAB [Suspect]
     Indication: BREAST CANCER
     Dosage: 310MG EVERY 3 WEEKS
     Route: 042
     Dates: start: 20111108
  2. LAPATINIB [Suspect]
     Indication: BREAST CANCER
     Dosage: 250MG PER DAY
     Route: 048
     Dates: start: 20111108
  3. DOXORUBICIN HCL [Suspect]
     Indication: BREAST CANCER
     Dosage: 24MG WEEKLY
     Route: 042
     Dates: start: 20111108
  4. PACLITAXEL [Suspect]
     Indication: BREAST CANCER
     Dosage: 95MG WEEKLY
     Route: 042
     Dates: start: 20111108
  5. CARBOPLATIN [Suspect]
     Indication: BREAST CANCER
     Dosage: 180U WEEKLY
     Route: 042
     Dates: start: 20111108

REACTIONS (1)
  - PYREXIA [None]
